FAERS Safety Report 5654661-X (Version None)
Quarter: 2008Q1

REPORT INFORMATION
  Report Type: 
  Country: None (occurrence: None)
  Receive Date: 20080307
  Receipt Date: 20080227
  Transmission Date: 20080703
  Serious: Yes (Other)
  Sender: FDA-Public Use
  Company Number: CA-JNJFOC-20080300335

PATIENT

DRUGS (1)
  1. INFLIXIMAB [Suspect]
     Indication: DRUG USE FOR UNKNOWN INDICATION
     Route: 042

REACTIONS (1)
  - SQUAMOUS CELL CARCINOMA [None]
